FAERS Safety Report 6654397-2 (Version None)
Quarter: 2010Q1

REPORT INFORMATION
  Report Type: 
  Country: None (occurrence: None)
  Receive Date: 20100326
  Receipt Date: 20100317
  Transmission Date: 20100710
  Serious: Yes (Other)
  Sender: FDA-Public Use
  Company Number: DE-PFIZER INC-2010034210

PATIENT
  Sex: Male

DRUGS (2)
  1. LYRICA [Suspect]
     Indication: NEURALGIA
     Dosage: 300 MG, 1X/DAY
  2. LYRICA [Suspect]
     Indication: POLYNEUROPATHY
     Dosage: 150 MG, 1X/DAY

REACTIONS (1)
  - MACULAR DEGENERATION [None]
